FAERS Safety Report 15311264 (Version 2)
Quarter: 2018Q3

REPORT INFORMATION
  Report Type: Spontaneous
  Country: HU (occurrence: HU)
  Receive Date: 20180823
  Receipt Date: 20180904
  Transmission Date: 20181010
  Serious: Yes (Hospitalization, Other)
  Sender: FDA-Public Use
  Company Number: HU-009507513-1808HUN007591

PATIENT
  Age: 74 Year
  Sex: Male

DRUGS (11)
  1. ISOPTIN [Concomitant]
     Active Substance: VERAPAMIL HYDROCHLORIDE
     Dosage: 240 MG, QD
     Route: 048
  2. CO?PRENESSA [Concomitant]
     Active Substance: INDAPAMIDE\PERINDOPRIL ERBUMINE
     Dosage: 1 DF, QD
     Route: 048
  3. PERINEVA [Concomitant]
     Active Substance: PERINDOPRIL ERBUMINE
     Dosage: 4 MG, QD
     Route: 048
  4. MILGAMMA N CAPSULES [Concomitant]
     Dosage: 1 DF, Q8H
     Route: 048
  5. KEYTRUDA [Suspect]
     Active Substance: PEMBROLIZUMAB
     Indication: MALIGNANT MELANOMA
     Dosage: 2 MG/KG, Q3W
     Route: 042
     Dates: start: 20180301
  6. ROSUVASTATIN. [Concomitant]
     Active Substance: ROSUVASTATIN
     Dosage: 40 MG, QD
     Route: 048
  7. ASPIRIN. [Concomitant]
     Active Substance: ASPIRIN
     Dosage: 100 MG, QD
     Route: 048
  8. XANAX [Concomitant]
     Active Substance: ALPRAZOLAM
     Dosage: 0.5 MG, QD
     Route: 048
  9. CATAFLAM DOLO [Concomitant]
     Dosage: 25 MG, FREQUENCY REPORTED AS 0.5 DAYS
     Route: 048
  10. VITAMIN D3 FRESENIUS [Concomitant]
     Dosage: 2000 IU, QD
     Route: 048
  11. FUROSEMID CHINOIN [Concomitant]
     Dosage: 40 MG, QD
     Route: 048

REACTIONS (8)
  - Nocturia [Recovering/Resolving]
  - Anaemia [Recovering/Resolving]
  - Dizziness postural [Recovering/Resolving]
  - Urinary hesitation [Recovering/Resolving]
  - Muscle spasms [Recovering/Resolving]
  - Dyspnoea [Recovering/Resolving]
  - Dysuria [Recovering/Resolving]
  - Vitiligo [Not Recovered/Not Resolved]

NARRATIVE: CASE EVENT DATE: 2018
